FAERS Safety Report 20649110 (Version 1)
Quarter: 2022Q1

REPORT INFORMATION
  Report Type: Spontaneous
  Country: US (occurrence: None)
  Receive Date: 20220329
  Receipt Date: 20220329
  Transmission Date: 20220424
  Serious: Yes (Hospitalization, Other)
  Sender: FDA-Public Use
  Company Number: None

PATIENT
  Sex: Female
  Weight: 84.6 kg

DRUGS (9)
  1. OCREVUS [Suspect]
     Active Substance: OCRELIZUMAB
     Indication: Multiple sclerosis
     Route: 042
  2. BACLOFEN [Concomitant]
     Active Substance: BACLOFEN
  3. VITAMIN D [Concomitant]
     Active Substance: VITAMIN D NOS
  4. DEXILANT [Concomitant]
     Active Substance: DEXLANSOPRAZOLE
  5. DIFLUCAN [Concomitant]
     Active Substance: FLUCONAZOLE
  6. LEVAQUIN [Concomitant]
     Active Substance: LEVOFLOXACIN
  7. VITAMIN B12 [Concomitant]
     Active Substance: CYANOCOBALAMIN
  8. VITAMIN C [Concomitant]
     Active Substance: ASCORBIC ACID
  9. ELEMENTAL IRON [Concomitant]

REACTIONS (3)
  - Pathological fracture [None]
  - Pneumonia pseudomonal [None]
  - Pneumonia fungal [None]
